FAERS Safety Report 10566992 (Version 1)
Quarter: 2014Q4

REPORT INFORMATION
  Report Type: Spontaneous
  Country: PR (occurrence: PR)
  Receive Date: 20141105
  Receipt Date: 20141105
  Transmission Date: 20150529
  Serious: Yes (Other)
  Sender: FDA-Public Use
  Company Number: US-TEVA-519944USA

PATIENT
  Sex: Female

DRUGS (1)
  1. COPAXONE [Suspect]
     Active Substance: GLATIRAMER ACETATE
     Indication: MULTIPLE SCLEROSIS

REACTIONS (12)
  - Headache [Unknown]
  - Myalgia [Unknown]
  - Crohn^s disease [Unknown]
  - Hypoaesthesia [Unknown]
  - Gait disturbance [Unknown]
  - Balance disorder [Unknown]
  - Constipation [Unknown]
  - Depression [Unknown]
  - Neck pain [Unknown]
  - Bladder disorder [Unknown]
  - Visual impairment [Unknown]
  - Pyrexia [Unknown]
